FAERS Safety Report 22525316 (Version 1)
Quarter: 2023Q2

REPORT INFORMATION
  Report Type: Spontaneous
  Country: None (occurrence: FR)
  Receive Date: 20230606
  Receipt Date: 20230606
  Transmission Date: 20230722
  Serious: Yes (Death, Other)
  Sender: FDA-Public Use
  Company Number: FR-B.Braun Medical Inc.-2142362

PATIENT
  Age: 41 Year
  Sex: Female

DRUGS (9)
  1. ACETAMINOPHEN [Suspect]
     Active Substance: ACETAMINOPHEN
  2. LIDOCAINE [Suspect]
     Active Substance: LIDOCAINE
  3. CANNABIS SATIVA SUBSP. INDICA TOP [Suspect]
     Active Substance: CANNABIS SATIVA SUBSP. INDICA TOP
  4. PROPOFOL [Suspect]
     Active Substance: PROPOFOL
  5. CEFTRIAXONE [Suspect]
     Active Substance: CEFTRIAXONE
  6. MORPHINE [Suspect]
     Active Substance: MORPHINE
  7. ACYCLOVIR [Suspect]
     Active Substance: ACYCLOVIR
  8. COCAINE [Suspect]
     Active Substance: COCAINE
  9. LEVAMISOLE [Suspect]
     Active Substance: LEVAMISOLE

REACTIONS (1)
  - Death [Fatal]
